FAERS Safety Report 24024279 (Version 3)
Quarter: 2024Q2

REPORT INFORMATION
  Report Type: Report from Study
  Country: IT (occurrence: IT)
  Receive Date: 20240627
  Receipt Date: 20240628
  Transmission Date: 20240716
  Serious: No
  Sender: FDA-Public Use
  Company Number: IT-ROCHE-3348697

PATIENT
  Age: 68 Year
  Sex: Male

DRUGS (13)
  1. ALECTINIB [Suspect]
     Active Substance: ALECTINIB
     Indication: Lung cancer metastatic
     Route: 048
     Dates: start: 20210803
  2. ALECTINIB [Suspect]
     Active Substance: ALECTINIB
     Route: 048
     Dates: start: 20201201
  3. ZOLEDRONIC ACID [Concomitant]
     Active Substance: ZOLEDRONIC ACID
     Route: 042
     Dates: start: 20220708, end: 20220708
  4. ZOLEDRONIC ACID [Concomitant]
     Active Substance: ZOLEDRONIC ACID
     Dosage: FREQUENCY TEXT:1
     Route: 042
     Dates: start: 20220928, end: 20220928
  5. CHOLECALCIFEROL [Concomitant]
     Active Substance: CHOLECALCIFEROL
     Route: 048
     Dates: start: 20220928, end: 20220928
  6. CHOLECALCIFEROL [Concomitant]
     Active Substance: CHOLECALCIFEROL
     Dosage: 25000 IU? FREQUENCY TEXT:PRN
     Route: 048
     Dates: start: 20220708, end: 20221117
  7. PURSENNID [Concomitant]
     Indication: Constipation
     Dosage: FREQUENCY TEXT:PRN
     Route: 048
     Dates: start: 20230123
  8. ALLOPURINOL [Concomitant]
     Active Substance: ALLOPURINOL
     Dosage: FREQUENCY TEXT:PRN
     Route: 048
     Dates: start: 20230123
  9. LORLATINIB [Concomitant]
     Active Substance: LORLATINIB
     Dates: start: 20240202, end: 20240219
  10. LORLATINIB [Concomitant]
     Active Substance: LORLATINIB
     Dates: start: 20240220, end: 20240319
  11. LORLATINIB [Concomitant]
     Active Substance: LORLATINIB
     Dates: start: 20240320, end: 20240327
  12. LORLATINIB [Concomitant]
     Active Substance: LORLATINIB
     Dates: start: 20240328
  13. MOVICOL [Concomitant]
     Active Substance: POLYETHYLENE GLYCOL 3350\POTASSIUM CHLORIDE\SODIUM BICARBONATE\SODIUM CHLORIDE
     Indication: Constipation
     Route: 048
     Dates: start: 20240202

REACTIONS (1)
  - Bone pain [Not Recovered/Not Resolved]

NARRATIVE: CASE EVENT DATE: 20220708
